FAERS Safety Report 10234035 (Version 2)
Quarter: 2014Q2

REPORT INFORMATION
  Report Type: Spontaneous
  Country: JP (occurrence: JP)
  Receive Date: 20140612
  Receipt Date: 20140612
  Transmission Date: 20141212
  Serious: Yes (Death, Other)
  Sender: FDA-Public Use
  Company Number: JP-BAYER-2014-037310

PATIENT
  Age: 58 Year
  Sex: Male
  Weight: 63 kg

DRUGS (10)
  1. STIVARGA [Suspect]
     Indication: COLON CANCER
     Dosage: 160 MG, QD (3 WEEKS ON AND 1 WEEK OFF)
     Route: 048
     Dates: start: 20140121, end: 20140207
  2. ALLEGRA [Suspect]
     Indication: RASH
     Dosage: DAILY DOSE 120 MG
     Route: 048
     Dates: start: 20140210, end: 20140224
  3. HYPEN [Concomitant]
     Indication: COLON CANCER
     Dosage: DAILY DOSE 400 MG
     Route: 048
  4. NEXIUM [Concomitant]
     Dosage: DAILY DOSE 20 MG
     Route: 048
  5. OXYCONTIN [Concomitant]
     Indication: COLON CANCER
     Dosage: UNK
     Route: 048
  6. BESOFTEN [Concomitant]
     Indication: RASH
     Route: 061
  7. BESOFTEN [Concomitant]
     Indication: PALMAR-PLANTAR ERYTHRODYSAESTHESIA SYNDROME
     Dosage: UNK
     Route: 061
  8. AMLODIPINE [Concomitant]
     Indication: CARDIOVASCULAR EVENT PROPHYLAXIS
     Dosage: DAILY DOSE 2.5 MG
     Route: 048
     Dates: start: 20140124, end: 20140126
  9. AMLODIPINE [Concomitant]
     Indication: CARDIOVASCULAR EVENT PROPHYLAXIS
     Dosage: DAILY DOSE 5 MG
     Route: 048
     Dates: start: 20140127, end: 20140220
  10. MICARDIS [Concomitant]
     Indication: HYPERTENSION
     Dosage: DAILY DOSE 20 MG
     Route: 048
     Dates: start: 20140131, end: 20140220

REACTIONS (6)
  - Colon cancer [Fatal]
  - Liver disorder [Recovered/Resolved]
  - Palmar-plantar erythrodysaesthesia syndrome [Recovered/Resolved]
  - Platelet count decreased [Recovered/Resolved]
  - Hypertension [Recovered/Resolved]
  - Rash [Recovered/Resolved]
